FAERS Safety Report 8419501-4 (Version None)
Quarter: 2012Q2

REPORT INFORMATION
  Report Type: 
  Country: None (occurrence: None)
  Receive Date: 20120607
  Receipt Date: 20110531
  Transmission Date: 20120825
  Serious: Yes (Other)
  Sender: FDA-Public Use
  Company Number: US-BRISTOL-MYERS SQUIBB COMPANY-15336431

PATIENT
  Age: 31 Year
  Sex: Male

DRUGS (9)
  1. MARIJUANA [Concomitant]
  2. EPZICOM [Suspect]
     Indication: HIV INFECTION
     Dosage: EVERY NIGHT,FEB10-SEP10,SEP10-UNK
     Dates: start: 20100201
  3. DEPAKOTE ER [Concomitant]
     Dosage: EVERY NIGHT
  4. ENSURE [Concomitant]
  5. LYRICA [Concomitant]
     Dosage: 2 TABS
  6. LACTIC ACID BACTERIA [Concomitant]
  7. SUSTIVA [Suspect]
     Indication: HIV INFECTION
     Dosage: FEB10-SEP10,SEP10-UNK
     Dates: start: 20100201, end: 20110529
  8. ATRIPLA [Suspect]
     Dosage: ONE DOSE
     Dates: start: 20100903, end: 20100901
  9. MULTI-VITAMIN [Concomitant]
     Dosage: MULTIVITAMIN GUMMY

REACTIONS (9)
  - HEADACHE [None]
  - CONVULSION [None]
  - DYSPNOEA [None]
  - HALLUCINATION [None]
  - DRY MOUTH [None]
  - NAUSEA [None]
  - TREMOR [None]
  - DEPRESSION [None]
  - WEIGHT DECREASED [None]
